FAERS Safety Report 7593084-3 (Version None)
Quarter: 2011Q3

REPORT INFORMATION
  Report Type: 
  Country: None (occurrence: None)
  Receive Date: 20110706
  Receipt Date: 20110630
  Transmission Date: 20111222
  Serious: Yes (Death)
  Sender: FDA-Public Use
  Company Number: AU-ROCHE-786664

PATIENT
  Sex: Male

DRUGS (4)
  1. LEUCOVORIN CALCIUM [Concomitant]
  2. OXALIPLATIN [Concomitant]
  3. AVASTIN [Suspect]
     Route: 065
     Dates: start: 20050622
  4. FLUOROURACIL [Concomitant]

REACTIONS (1)
  - CHEST INJURY [None]
